FAERS Safety Report 17315978 (Version 2)
Quarter: 2020Q1

REPORT INFORMATION
  Report Type: Spontaneous
  Country: DE (occurrence: DE)
  Receive Date: 20200124
  Receipt Date: 20200129
  Transmission Date: 20200409
  Serious: Yes (Other)
  Sender: FDA-Public Use
  Company Number: DE-MYLANLABS-2020M1006990

PATIENT
  Age: 66 Year
  Sex: Female
  Weight: 70 kg

DRUGS (4)
  1. FOLSAN [Concomitant]
     Active Substance: FOLIC ACID
     Dosage: 5 MILLIGRAM, QW (5 MG, WEEKLY)
     Route: 065
     Dates: start: 201408, end: 201412
  2. METHOTREXATE. [Suspect]
     Active Substance: METHOTREXATE
     Dosage: 10 MILLIGRAM, 10 MG, UNK
     Dates: start: 201412, end: 201412
  3. METHOTREXATE. [Suspect]
     Active Substance: METHOTREXATE
     Indication: PRODUCT USED FOR UNKNOWN INDICATION
     Dosage: 15 MILLIGRAM, QW (15 MG, WEEKLY)
     Route: 058
     Dates: start: 201408, end: 201411
  4. METHOTREXATE. [Suspect]
     Active Substance: METHOTREXATE
     Dosage: 10 MILLIGRAM ( MG, UNK)
     Route: 065
     Dates: start: 201412, end: 201605

REACTIONS (3)
  - Interstitial lung disease [Unknown]
  - Hepatic enzyme increased [Recovered/Resolved]
  - Drug ineffective [Unknown]

NARRATIVE: CASE EVENT DATE: 2014
